FAERS Safety Report 7952531-5 (Version None)
Quarter: 2011Q4

REPORT INFORMATION
  Report Type: 
  Country: None (occurrence: None)
  Receive Date: 20111201
  Receipt Date: 20111123
  Transmission Date: 20120403
  Serious: Yes (Other)
  Sender: FDA-Public Use
  Company Number: PHHY2011CA104029

PATIENT
  Age: 10 Year
  Sex: Male

DRUGS (2)
  1. ANGIOTENSIN CONVERTING ENZYME BLOCKERS [Concomitant]
     Indication: HYPERTENSION
     Dosage: UNK UKN, UNK
  2. TACROLIMUS [Suspect]
     Indication: NEPHROTIC SYNDROME
     Dosage: 0.12 MG/KG/DAY

REACTIONS (4)
  - KIDNEY FIBROSIS [None]
  - RENAL TUBULAR ATROPHY [None]
  - DISEASE RECURRENCE [None]
  - NEPHROSCLEROSIS [None]
